FAERS Safety Report 8265640 (Version 5)
Quarter: 2013Q1

REPORT INFORMATION
  Report Type: Spontaneous
  Country: US (occurrence: US)
  Receive Date: 20111128
  Receipt Date: 20130222
  Transmission Date: 20140127
  Serious: Yes (Hospitalization, Other)
  Sender: FDA-Public Use
  Company Number: US-RB-023723-11

PATIENT
  Age: 22 None
  Sex: Female

DRUGS (4)
  1. SUBUTEX [Suspect]
     Indication: DRUG DEPENDENCE
     Dosage: DOSING IS 16 MG OR LESS DAILY (STARTED TAPERING FROM HERE)
     Route: 060
     Dates: start: 20110220, end: 2011
  2. SUBUTEX [Suspect]
     Route: 060
     Dates: start: 2011, end: 20111024
  3. SUBUTEX [Suspect]
     Route: 060
  4. PRENATAL VITAMIN [Concomitant]
     Indication: VITAMIN SUPPLEMENTATION
     Dosage: ONCE DAILY
     Route: 048
     Dates: start: 20110220

REACTIONS (5)
  - Exposure during pregnancy [Recovered/Resolved]
  - Wrong technique in drug usage process [Recovered/Resolved]
  - Foetal growth restriction [Recovered/Resolved]
  - Failed trial of labour [Recovered/Resolved]
  - Umbilical cord around neck [Recovered/Resolved]
